FAERS Safety Report 16269815 (Version 3)
Quarter: 2019Q2

REPORT INFORMATION
  Report Type: Spontaneous
  Country: US (occurrence: US)
  Receive Date: 20190503
  Receipt Date: 20190606
  Transmission Date: 20190711
  Serious: No
  Sender: FDA-Public Use
  Company Number: US-PFIZER INC-2019184528

PATIENT
  Age: 62 Year
  Sex: Female

DRUGS (4)
  1. INDERAL [Suspect]
     Active Substance: PROPRANOLOL HYDROCHLORIDE
     Dosage: UNK
  2. PLAQUENIL [Suspect]
     Active Substance: HYDROXYCHLOROQUINE SULFATE
     Dosage: UNK
  3. HYDROXYCHLOROQUINE SULFATE. [Suspect]
     Active Substance: HYDROXYCHLOROQUINE SULFATE
     Dosage: UNK
  4. CLINORIL [Suspect]
     Active Substance: SULINDAC
     Dosage: UNK

REACTIONS (3)
  - Drug hypersensitivity [Unknown]
  - Drug intolerance [Unknown]
  - Gastrointestinal disorder [Unknown]
